FAERS Safety Report 24725438 (Version 3)
Quarter: 2025Q1

REPORT INFORMATION
  Report Type: Spontaneous
  Country: FR (occurrence: FR)
  Receive Date: 20241212
  Receipt Date: 20250312
  Transmission Date: 20250408
  Serious: Yes (Other)
  Sender: BIOVITRUM
  Company Number: FR-BIOVITRUM-2024-FR-014910

PATIENT
  Sex: Female

DRUGS (1)
  1. KINERET [Suspect]
     Active Substance: ANAKINRA
     Indication: Still^s disease

REACTIONS (2)
  - Haemophagocytic lymphohistiocytosis [Unknown]
  - Disease recurrence [Unknown]
